FAERS Safety Report 4595804-9 (Version None)
Quarter: 2005Q1

REPORT INFORMATION
  Report Type: 
  Country: None (occurrence: None)
  Receive Date: 20050224
  Receipt Date: 20050224
  Transmission Date: 20050727
  Serious: Yes (Hospitalization)
  Sender: FDA-Public Use
  Company Number: None

PATIENT
  Age: 81 Year
  Sex: Female
  Weight: 52.2 kg

DRUGS (13)
  1. DIGOXIN [Suspect]
     Indication: ATRIAL FIBRILLATION
     Dosage: DIGOXIN  Q48 HOURS ORAL
     Route: 048
     Dates: start: 20040106, end: 20050106
  2. DIGOXIN [Suspect]
     Indication: CARDIAC FAILURE CONGESTIVE
     Dosage: DIGOXIN  Q48 HOURS ORAL
     Route: 048
     Dates: start: 20040106, end: 20050106
  3. AMIODARONE [Concomitant]
  4. BUMEX [Concomitant]
  5. LOMOTIL [Concomitant]
  6. VASOTEC [Concomitant]
  7. PEPCID [Concomitant]
  8. VICODIN ES [Concomitant]
  9. LORAZEPAM [Concomitant]
  10. REMEROL [Concomitant]
  11. PRAVACHOL [Concomitant]
  12. REMINYL [Concomitant]
  13. COUMADIN [Concomitant]

REACTIONS (4)
  - ASTHENIA [None]
  - BLOOD UREA INCREASED [None]
  - CONFUSIONAL STATE [None]
  - DIARRHOEA [None]
